FAERS Safety Report 13467000 (Version 2)
Quarter: 2017Q2

REPORT INFORMATION
  Report Type: Report from Study
  Country: None (occurrence: US)
  Receive Date: 20170421
  Receipt Date: 20170522
  Transmission Date: 20170830
  Serious: Yes (Other)
  Sender: FDA-Public Use
  Company Number: US-ABBVIE-17K-163-1946365-00

PATIENT
  Sex: Female

DRUGS (1)
  1. HUMIRA [Suspect]
     Active Substance: ADALIMUMAB
     Indication: COLITIS ULCERATIVE
     Route: 058

REACTIONS (5)
  - Nausea [Unknown]
  - Drug ineffective [Unknown]
  - Dyschezia [Unknown]
  - Large intestinal obstruction [Unknown]
  - Hypophagia [Unknown]

NARRATIVE: CASE EVENT DATE: 2015
